FAERS Safety Report 19940016 (Version 1)
Quarter: 2021Q4

REPORT INFORMATION
  Report Type: Spontaneous
  Country: US (occurrence: US)
  Receive Date: 20211011
  Receipt Date: 20211011
  Transmission Date: 20220303
  Serious: Yes (Hospitalization, Other)
  Sender: FDA-Public Use
  Company Number: US-SANOFI-00801063

PATIENT
  Age: 54 Year
  Sex: Male

DRUGS (2)
  1. DUPIXENT [Suspect]
     Active Substance: DUPILUMAB
     Dosage: UNK
     Dates: start: 20210727, end: 2021
  2. LISINOPRIL [Suspect]
     Active Substance: LISINOPRIL
     Dosage: UNK
     Dates: start: 202107

REACTIONS (4)
  - Angioedema [Unknown]
  - Swelling face [Unknown]
  - Lip swelling [Unknown]
  - Throat tightness [Unknown]

NARRATIVE: CASE EVENT DATE: 20210701
